FAERS Safety Report 9191257 (Version 1)
Quarter: 2013Q1

REPORT INFORMATION
  Report Type: Spontaneous
  Country: US (occurrence: US)
  Receive Date: 20130326
  Receipt Date: 20130326
  Transmission Date: 20140127
  Serious: No
  Sender: FDA-Public Use
  Company Number: US-ASTRAZENECA-2013SE16640

PATIENT
  Sex: Male

DRUGS (2)
  1. NEXIUM [Suspect]
     Route: 048
  2. OTHER MEDICATION [Suspect]
     Dosage: GENERIC
     Route: 065

REACTIONS (3)
  - Aphagia [Unknown]
  - Dyspepsia [Unknown]
  - Intentional drug misuse [Unknown]
